FAERS Safety Report 24639077 (Version 2)
Quarter: 2024Q4

REPORT INFORMATION
  Report Type: Spontaneous
  Country: US (occurrence: US)
  Receive Date: 20241119
  Receipt Date: 20241211
  Transmission Date: 20250114
  Serious: No
  Sender: INSUD PHARMA
  Company Number: US-INSUD PHARMA-2411US08685

PATIENT

DRUGS (1)
  1. SLYND [Suspect]
     Active Substance: DROSPIRENONE
     Indication: Hormone level abnormal
     Dosage: 1 DOSAGE FORM, QD
     Route: 048
     Dates: start: 20241002, end: 202411

REACTIONS (3)
  - Intermenstrual bleeding [Recovered/Resolved]
  - Headache [Recovering/Resolving]
  - Product prescribing issue [Unknown]

NARRATIVE: CASE EVENT DATE: 20240101
